FAERS Safety Report 8020960-X (Version None)
Quarter: 2011Q4

REPORT INFORMATION
  Report Type: 
  Country: None (occurrence: None)
  Receive Date: 20111229
  Receipt Date: 20111229
  Transmission Date: 20120403
  Serious: No
  Sender: FDA-Public Use
  Company Number: None

PATIENT
  Sex: Male
  Weight: 73.3 kg

DRUGS (3)
  1. CARBOPLATIN [Suspect]
     Dosage: 564 MG
     Dates: end: 20100331
  2. TAXOL [Suspect]
     Dosage: 370 MG
     Dates: end: 20100331
  3. ERBITUX [Suspect]
     Dosage: 2400 MG
     Dates: end: 20100505

REACTIONS (1)
  - NASAL INFLAMMATION [None]
